FAERS Safety Report 9858423 (Version 1)
Quarter: 2014Q1

REPORT INFORMATION
  Report Type: Spontaneous
  Country: US (occurrence: None)
  Receive Date: 20140129
  Receipt Date: 20140129
  Transmission Date: 20141002
  Serious: Yes (Hospitalization)
  Sender: FDA-Public Use
  Company Number: None

PATIENT
  Age: 60 Year
  Sex: Male
  Weight: 59 kg

DRUGS (1)
  1. BEVACIZUMAB(RHUMAB VEGF) [Suspect]

REACTIONS (6)
  - Oedema peripheral [None]
  - Dyspnoea [None]
  - Hyperparathyroidism [None]
  - Dyspnoea exertional [None]
  - Productive cough [None]
  - Pneumonia [None]
